FAERS Safety Report 8032881-7 (Version None)
Quarter: 2012Q1

REPORT INFORMATION
  Report Type: 
  Country: None (occurrence: None)
  Receive Date: 20120110
  Receipt Date: 20120105
  Transmission Date: 20120608
  Serious: Yes (Other)
  Sender: FDA-Public Use
  Company Number: CA-PFIZER INC-2012003735

PATIENT
  Age: 21 Year
  Sex: Male

DRUGS (3)
  1. TYLENOL SINUS [Suspect]
     Dosage: UNK
     Dates: start: 20120102
  2. ADVIL COLD AND SINUS [Suspect]
     Dosage: UNK
     Dates: start: 20120102
  3. NEO CITRAN ^NOVARTIS^ [Suspect]
     Dosage: UNK
     Dates: start: 20120102

REACTIONS (3)
  - PHARYNGITIS STREPTOCOCCAL [None]
  - DEHYDRATION [None]
  - CHEST PAIN [None]
